FAERS Safety Report 4293990-1 (Version None)
Quarter: 2004Q1

REPORT INFORMATION
  Report Type: 
  Country: None (occurrence: None)
  Receive Date: 20040212
  Receipt Date: 20020528
  Transmission Date: 20041129
  Serious: Yes (Hospitalization)
  Sender: FDA-Public Use
  Company Number: WAES 0205FRA00052

PATIENT
  Age: 73 Year
  Sex: Female

DRUGS (4)
  1. BAMBUTEROL [Concomitant]
     Indication: ASTHMA
     Route: 048
     Dates: start: 20011101
  2. CORTICOSTEROIDS (UNSPECIFIED) [Concomitant]
     Indication: ASTHMA
     Route: 055
     Dates: start: 20010901
  3. SINGULAIR [Suspect]
     Indication: ASTHMA
     Route: 048
     Dates: start: 20020301, end: 20020501
  4. SALMETEROL [Concomitant]
     Indication: ASTHMA
     Route: 055
     Dates: start: 20010901

REACTIONS (1)
  - ALLERGIC GRANULOMATOUS ANGIITIS [None]
